FAERS Safety Report 6603163-2 (Version None)
Quarter: 2010Q1

REPORT INFORMATION
  Report Type: 
  Country: None (occurrence: None)
  Receive Date: 20100226
  Receipt Date: 20100219
  Transmission Date: 20100710
  Serious: Yes (Other)
  Sender: FDA-Public Use
  Company Number: PHHY2010AR10018

PATIENT
  Sex: Female

DRUGS (1)
  1. EXELON [Suspect]
     Indication: APATHY
     Dosage: 1.5 MG, BID
     Dates: start: 20100129, end: 20100129

REACTIONS (4)
  - DIZZINESS [None]
  - FEELING ABNORMAL [None]
  - SEDATION [None]
  - SOMNOLENCE [None]
